FAERS Safety Report 9185700 (Version 1)
Quarter: 2013Q1

REPORT INFORMATION
  Report Type: Spontaneous
  Country: IT (occurrence: None)
  Receive Date: 20130321
  Receipt Date: 20130321
  Transmission Date: 20140127
  Serious: Yes (Hospitalization)
  Sender: FDA-Public Use
  Company Number: 2013-04919

PATIENT
  Age: 76 Year
  Sex: Female

DRUGS (7)
  1. IBUPROFEN [Suspect]
     Indication: INFLUENZA
     Route: 048
     Dates: start: 20130107, end: 20130107
  2. ZANEDIP (LERCANIDIPINE HYDROCHLORIDE) [Concomitant]
  3. ALLOPURINOL TEVA (ALLOPURINOL) [Concomitant]
  4. IDROQUARK (HYDROCHLOROTHIAZIDE RAMIPRIL) [Concomitant]
  5. HUMALOG (ISULIN LISPROL) [Concomitant]
  6. LANTUS (INSULIN GLARGINE) [Concomitant]
  7. ARMILLA (TOCOPHERYL ACID SUCCINATE) [Concomitant]

REACTIONS (4)
  - Face oedema [None]
  - Erythema [None]
  - Rash generalised [None]
  - Urticaria [None]
